FAERS Safety Report 17655078 (Version 1)
Quarter: 2020Q2

REPORT INFORMATION
  Report Type: Spontaneous
  Country: US (occurrence: US)
  Receive Date: 20200409
  Receipt Date: 20200409
  Transmission Date: 20200713
  Serious: Yes (Hospitalization)
  Sender: FDA-Public Use
  Company Number: None

PATIENT
  Age: 71 Year
  Sex: Male
  Weight: 88 kg

DRUGS (2)
  1. GABAPENTIN (GABAPENTIN 300MG CAP) [Suspect]
     Active Substance: GABAPENTIN
     Indication: PAIN
     Route: 048
     Dates: start: 20171117
  2. LEVETIRACETAM (LEVETIRACETAM 750MG TAB) [Suspect]
     Active Substance: LEVETIRACETAM
     Indication: SEIZURE
     Route: 048
     Dates: start: 20171129

REACTIONS (1)
  - Confusional state [None]

NARRATIVE: CASE EVENT DATE: 20171216
